FAERS Safety Report 9713936 (Version 1)
Quarter: 2013Q4

REPORT INFORMATION
  Report Type: Spontaneous
  Country: US (occurrence: US)
  Receive Date: 20131126
  Receipt Date: 20131126
  Transmission Date: 20140711
  Serious: No
  Sender: FDA-Public Use
  Company Number: US-GILEAD-2008-0018221

PATIENT
  Sex: Female
  Weight: 64.86 kg

DRUGS (13)
  1. LETAIRIS [Suspect]
     Indication: PULMONARY ARTERIAL HYPERTENSION
     Route: 048
     Dates: start: 20080911, end: 20080919
  2. FLOLAN [Concomitant]
     Dosage: AS DIRECTED
  3. REVATIO [Concomitant]
     Dosage: AS DIRECTED
     Route: 048
  4. WARFARIN SODIUM [Concomitant]
     Dosage: AS DIRECTED
     Route: 048
  5. OXYGEN [Concomitant]
     Dosage: AS DIRECTED
  6. LASIX [Concomitant]
     Dosage: AS DIRECTED
     Route: 048
  7. SPIRONOLACTONE [Concomitant]
     Dosage: AS DIRECTED
     Route: 048
  8. METOLAZONE [Concomitant]
     Dosage: AS DIRECTED
     Route: 048
  9. DIGOXIN [Concomitant]
     Dosage: AS DIRECTED
     Route: 048
  10. SLOW MAG [Concomitant]
     Dosage: AS DIRECTED
     Route: 048
  11. SODIUM CHLORIDE [Concomitant]
     Dosage: AS DIRECTED
  12. KLOR-CON [Concomitant]
     Dosage: AS DIRECTED
     Route: 048
  13. DIPHENOXYLATE/ATROP SULF [Concomitant]
     Dosage: AS DIRECTED

REACTIONS (1)
  - Malaise [None]
